FAERS Safety Report 6557922-5 (Version None)
Quarter: 2010Q1

REPORT INFORMATION
  Report Type: 
  Country: None (occurrence: None)
  Receive Date: 20100129
  Receipt Date: 20100121
  Transmission Date: 20100710
  Serious: Yes (Other)
  Sender: FDA-Public Use
  Company Number: JP-ASTRAZENECA-2010SE03712

PATIENT
  Age: 35 Year
  Sex: Male
  Weight: 57.8 kg

DRUGS (4)
  1. SEROQUEL [Suspect]
     Indication: DEPRESSION
     Route: 048
     Dates: start: 20091216, end: 20100105
  2. RISPERDAL [Suspect]
     Route: 048
  3. RISPERDAL [Suspect]
     Route: 048
  4. MINZAIN [Concomitant]
     Route: 048
     Dates: start: 20091216

REACTIONS (2)
  - HYPOAESTHESIA ORAL [None]
  - TONGUE DISCOLOURATION [None]
